FAERS Safety Report 24819313 (Version 1)
Quarter: 2025Q1

REPORT INFORMATION
  Report Type: Spontaneous
  Country: FR (occurrence: FR)
  Receive Date: 20250108
  Receipt Date: 20250108
  Transmission Date: 20250409
  Serious: Yes (Hospitalization)
  Sender: PFIZER
  Company Number: None

PATIENT
  Age: 55 Year
  Sex: Male

DRUGS (5)
  1. PANTOPRAZOLE [Suspect]
     Active Substance: PANTOPRAZOLE
     Indication: Prophylaxis against gastrointestinal ulcer
     Dosage: 20 MILLIGRAM, QD
     Route: 048
     Dates: start: 20241217
  2. ELIQUIS [Suspect]
     Active Substance: APIXABAN
     Indication: Cardiac ventricular thrombosis
     Dosage: 5 MILLIGRAMS 2 EVERY 1 DAY
     Route: 048
     Dates: start: 20241217
  3. CANRENOATE POTASSIUM\TROMETHAMINE [Suspect]
     Active Substance: CANRENOATE POTASSIUM\TROMETHAMINE
     Indication: Cardiac failure
     Dosage: 5 MILLIGRAM, QD (DOSAGE FORM: LYOPHILISATE AND SOLUTION FOR PARENTERAL USE)
     Route: 048
     Dates: start: 20241218
  4. EPLERENONE [Suspect]
     Active Substance: EPLERENONE
     Dosage: 25 MILLIGRAM, QD
     Route: 048
     Dates: start: 20241217
  5. NICOTINAMIDE [Suspect]
     Active Substance: NIACINAMIDE
     Indication: Starvation
     Route: 048
     Dates: start: 20241217

REACTIONS (2)
  - Rash maculo-papular [Not Recovered/Not Resolved]
  - Off label use [Unknown]

NARRATIVE: CASE EVENT DATE: 20241221
